FAERS Safety Report 16776724 (Version 9)
Quarter: 2020Q3

REPORT INFORMATION
  Report Type: Spontaneous
  Country: US (occurrence: US)
  Receive Date: 20190905
  Receipt Date: 20200914
  Transmission Date: 20201102
  Serious: No
  Sender: FDA-Public Use
  Company Number: US-SA-2019SA245426

PATIENT

DRUGS (2)
  1. DUPIXENT [Suspect]
     Active Substance: DUPILUMAB
     Indication: DERMATITIS ATOPIC
     Dosage: 300 MG, QOW
     Route: 058
     Dates: start: 20190627
  2. DUPIXENT [Suspect]
     Active Substance: DUPILUMAB
     Indication: ECZEMA INFANTILE

REACTIONS (19)
  - Mass [Unknown]
  - Eyelid oedema [Unknown]
  - Product use issue [Unknown]
  - Influenza [Unknown]
  - Lagophthalmos [Unknown]
  - Nasopharyngitis [Unknown]
  - Eye swelling [Unknown]
  - Cataract operation [Recovered/Resolved]
  - Eye discharge [Recovering/Resolving]
  - Eye infection [Recovered/Resolved]
  - Oral herpes [Unknown]
  - Pain [Unknown]
  - Eye infection [Unknown]
  - Alopecia [Recovering/Resolving]
  - Productive cough [Unknown]
  - Sneezing [Unknown]
  - Pigmentation disorder [Unknown]
  - Swelling of eyelid [Unknown]
  - Eye irritation [Recovered/Resolved]

NARRATIVE: CASE EVENT DATE: 20190829
